FAERS Safety Report 16529121 (Version 1)
Quarter: 2019Q3

REPORT INFORMATION
  Report Type: Spontaneous
  Country: US (occurrence: US)
  Receive Date: 20190704
  Receipt Date: 20190704
  Transmission Date: 20191004
  Serious: No
  Sender: FDA-Public Use
  Company Number: US-GW PHARMA-201904USGW0991

PATIENT

DRUGS (9)
  1. EPIDIOLEX [Suspect]
     Active Substance: CANNABIDIOL
     Dosage: (10MG/KG/DAY) 883 MILLIGRAM, QD, WEEK 2
     Route: 048
  2. EPIDIOLEX [Suspect]
     Active Substance: CANNABIDIOL
     Dosage: 460 MILLIGRAM, BID (WEANED OFF TO 10.42MG/KG FOR 5 DAYS)
     Route: 048
  3. EPIDIOLEX [Suspect]
     Active Substance: CANNABIDIOL
     Dosage: (15MG/KG/DAY) 1324.5 MILLIGRAM, QD, WEEK 3
     Route: 048
  4. EPIDIOLEX [Suspect]
     Active Substance: CANNABIDIOL
     Dosage: 230 MILLIGRAM, BID (WEANED OFF TO 5.21MG/KG FOR 5 DAYS)
     Route: 048
  5. EPIDIOLEX [Suspect]
     Active Substance: CANNABIDIOL
     Dosage: 680 MILLIGRAM, BID (15.4/MG/KG) 3RD WEEK OF TITRATION
     Route: 048
  6. DEPAKOTE [Concomitant]
     Active Substance: DIVALPROEX SODIUM
     Indication: PRODUCT USED FOR UNKNOWN INDICATION
     Dosage: 750-1000 (UNITS UNSPECIFIED), EXTENDED RELEASE
     Route: 065
  7. BANZEL [Concomitant]
     Active Substance: RUFINAMIDE
     Indication: PRODUCT USED FOR UNKNOWN INDICATION
     Dosage: 800-1200 (UNIT UNSPECIFIED)
     Route: 065
  8. EPIDIOLEX [Suspect]
     Active Substance: CANNABIDIOL
     Indication: PRODUCT USED FOR UNKNOWN INDICATION
     Dosage: (5MG/KG/DAY)441.5 MILLIGRAM, QD ON WEEK 1
     Route: 048
  9. LAMICTAL [Concomitant]
     Active Substance: LAMOTRIGINE
     Indication: PRODUCT USED FOR UNKNOWN INDICATION
     Dosage: 100-100 (UNIT UNSPECIFIED)
     Route: 065

REACTIONS (2)
  - Abnormal behaviour [Recovering/Resolving]
  - Seizure [Recovering/Resolving]
